FAERS Safety Report 7121756-3 (Version None)
Quarter: 2010Q4

REPORT INFORMATION
  Report Type: 
  Country: None (occurrence: None)
  Receive Date: 20101122
  Receipt Date: 20101122
  Transmission Date: 20110411
  Serious: Yes (Other)
  Sender: FDA-Public Use
  Company Number: None

PATIENT
  Age: 62 Year
  Sex: Female
  Weight: 65.7716 kg

DRUGS (4)
  1. REVLIMID [Suspect]
     Indication: MULTIPLE MYELOMA
     Dosage: REVLIMID 25MG DAILY X 21DAYS ORAL
     Route: 048
     Dates: start: 20101029
  2. DEXAMETHASONE [Concomitant]
  3. ATENOLOL [Concomitant]
  4. GLUCOSAMINE SULFATE [Concomitant]

REACTIONS (2)
  - RASH [None]
  - URTICARIA [None]
